FAERS Safety Report 24670346 (Version 1)
Quarter: 2024Q4

REPORT INFORMATION
  Report Type: Other
  Country: CA (occurrence: CA)
  Receive Date: 20241127
  Receipt Date: 20241127
  Transmission Date: 20250115
  Serious: Yes (Hospitalization)
  Sender: Atnahs Healthcare
  Company Number: CA-ATNAHS-ATNAHS20241100703

PATIENT
  Age: 56 Year
  Sex: Male
  Weight: 74 kg

DRUGS (13)
  1. NAPROXEN [Suspect]
     Active Substance: NAPROXEN
     Indication: Product used for unknown indication
  2. CYCLOBENZAPRINE [Suspect]
     Active Substance: CYCLOBENZAPRINE
     Indication: Product used for unknown indication
  3. HYDROMORPHONE [Suspect]
     Active Substance: HYDROMORPHONE
     Indication: Spinal cord compression
     Dosage: UNK
  4. KETAMINE [Suspect]
     Active Substance: KETAMINE
     Indication: Spinal cord compression
     Dosage: UNK
  5. OPNURASIB [Suspect]
     Active Substance: OPNURASIB
     Indication: K-ras gene mutation
     Dosage: 200 MG ONCE EVERY 5 DAYS
  6. TYLENOL [Suspect]
     Active Substance: ACETAMINOPHEN
     Indication: Bone pain
  7. TYLENOL [Suspect]
     Active Substance: ACETAMINOPHEN
     Indication: Back pain
  8. AMLODIPINE [Concomitant]
     Active Substance: AMLODIPINE BESYLATE
     Indication: Product used for unknown indication
  9. APIXABAN [Concomitant]
     Active Substance: APIXABAN
     Indication: Product used for unknown indication
  10. POLYETHYLENE GLYCOLS [Concomitant]
     Active Substance: POLYETHYLENE GLYCOLS
     Indication: Product used for unknown indication
  11. MAGNESIUM HYDROXIDE [Concomitant]
     Active Substance: MAGNESIUM HYDROXIDE
     Indication: Product used for unknown indication
  12. MAGNESIUM OXIDE [Concomitant]
     Active Substance: MAGNESIUM OXIDE
     Indication: Product used for unknown indication
  13. PERINDOPRIL ERBUMINE [Concomitant]
     Active Substance: PERINDOPRIL ERBUMINE
     Indication: Product used for unknown indication

REACTIONS (1)
  - Mental status changes [Not Recovered/Not Resolved]
